FAERS Safety Report 5088110-X (Version None)
Quarter: 2006Q3

REPORT INFORMATION
  Report Type: 
  Country: None (occurrence: None)
  Receive Date: 20060727
  Receipt Date: 20060427
  Transmission Date: 20061208
  Serious: Yes (Other)
  Sender: FDA-Public Use
  Company Number: 2006022873

PATIENT
  Age: 42 Year
  Sex: Male

DRUGS (1)
  1. LYRICA [Suspect]
     Indication: NEURALGIA
     Dosage: 600 MG (300 MG 2 IN 1 D) ORAL
     Route: 048
     Dates: start: 20050101

REACTIONS (2)
  - OEDEMA PERIPHERAL [None]
  - PAIN [None]
